FAERS Safety Report 13412551 (Version 3)
Quarter: 2024Q4

REPORT INFORMATION
  Report Type: Spontaneous
  Country: US (occurrence: US)
  Receive Date: 20170406
  Receipt Date: 20241108
  Transmission Date: 20250115
  Serious: No
  Sender: JOHNSON AND JOHNSON
  Company Number: US-JNJFOC-20170308371

PATIENT
  Age: 9 Year
  Sex: Male

DRUGS (25)
  1. RISPERDAL [Suspect]
     Active Substance: RISPERIDONE
     Indication: Attention deficit hyperactivity disorder
     Dosage: 0.5MG, 1MG
     Route: 048
     Dates: start: 20061107, end: 20070117
  2. RISPERDAL [Suspect]
     Active Substance: RISPERIDONE
     Indication: Oppositional defiant disorder
     Dosage: 0.5MG-1MG
     Route: 048
     Dates: start: 20070308
  3. RISPERDAL [Suspect]
     Active Substance: RISPERIDONE
     Dosage: 0.125-0.25MG IN AM,1MG AT BEDTIME
     Route: 048
     Dates: start: 20070405
  4. RISPERDAL [Suspect]
     Active Substance: RISPERIDONE
     Dosage: 1.5MG-3MG
     Route: 048
     Dates: start: 20070718
  5. RISPERDAL [Suspect]
     Active Substance: RISPERIDONE
     Route: 048
     Dates: start: 20071016, end: 20081015
  6. RISPERDAL [Suspect]
     Active Substance: RISPERIDONE
     Dosage: 0.5MG, 1MG
     Route: 048
     Dates: start: 20090116
  7. RISPERDAL [Suspect]
     Active Substance: RISPERIDONE
     Dosage: 0.125-0.25MG IN AM,1-1.5 MG AT BEDTIME
     Route: 048
     Dates: start: 20090220, end: 20090325
  8. RISPERDAL [Suspect]
     Active Substance: RISPERIDONE
     Dosage: 0.25MG 1 IN AM,1 MG 1 IN EVENING
     Route: 048
     Dates: start: 20090722
  9. RISPERDAL [Suspect]
     Active Substance: RISPERIDONE
     Dosage: 0.25MG 1 IN AM,1-1.5MG 1 AT BEDTIME
     Route: 048
     Dates: start: 20091012, end: 20100507
  10. RISPERDAL [Suspect]
     Active Substance: RISPERIDONE
     Dosage: 1.5MG TO 3MG
     Route: 048
     Dates: start: 20100622, end: 20101119
  11. RISPERDAL [Suspect]
     Active Substance: RISPERIDONE
     Route: 048
     Dates: start: 20110113, end: 20110309
  12. RISPERDAL [Suspect]
     Active Substance: RISPERIDONE
     Route: 048
     Dates: start: 20111006
  13. RISPERDAL [Suspect]
     Active Substance: RISPERIDONE
     Route: 048
     Dates: start: 20111213
  14. RISPERDAL [Suspect]
     Active Substance: RISPERIDONE
     Route: 048
     Dates: start: 20120808, end: 201305
  15. RISPERDAL [Suspect]
     Active Substance: RISPERIDONE
     Route: 048
     Dates: end: 20130512
  16. RISPERDAL [Suspect]
     Active Substance: RISPERIDONE
     Route: 048
     Dates: start: 20130612
  17. RISPERDAL [Suspect]
     Active Substance: RISPERIDONE
     Route: 048
     Dates: end: 20130918
  18. RISPERIDONE [Suspect]
     Active Substance: RISPERIDONE
     Indication: Attention deficit hyperactivity disorder
     Route: 048
     Dates: start: 20061107
  19. RISPERIDONE [Suspect]
     Active Substance: RISPERIDONE
     Indication: Oppositional defiant disorder
     Route: 048
     Dates: start: 20081025
  20. RISPERIDONE [Suspect]
     Active Substance: RISPERIDONE
     Dosage: 0.25MG, 1MG
     Route: 048
     Dates: start: 20090521, end: 20090909
  21. RISPERIDONE [Suspect]
     Active Substance: RISPERIDONE
     Route: 048
     Dates: start: 20101203
  22. RISPERIDONE [Suspect]
     Active Substance: RISPERIDONE
     Route: 048
     Dates: start: 20110411, end: 20110808
  23. RISPERIDONE [Suspect]
     Active Substance: RISPERIDONE
     Route: 048
     Dates: start: 20120201, end: 20120723
  24. RISPERIDONE [Suspect]
     Active Substance: RISPERIDONE
     Route: 048
     Dates: end: 20130512
  25. RISPERIDONE [Suspect]
     Active Substance: RISPERIDONE
     Route: 048
     Dates: start: 20130612, end: 20130918

REACTIONS (4)
  - Gynaecomastia [Unknown]
  - Emotional disorder [Unknown]
  - Off label use [Unknown]
  - Product use in unapproved indication [Unknown]

NARRATIVE: CASE EVENT DATE: 20061107
